FAERS Safety Report 6818332-6 (Version None)
Quarter: 2010Q3

REPORT INFORMATION
  Report Type: 
  Country: None (occurrence: None)
  Receive Date: 20100706
  Receipt Date: 20100621
  Transmission Date: 20110219
  Serious: Yes (Other)
  Sender: FDA-Public Use
  Company Number: US-ELI_LILLY_AND_COMPANY-US201006006102

PATIENT
  Sex: Female

DRUGS (1)
  1. CYMBALTA [Suspect]
     Dosage: 120 MG, UNKNOWN
     Route: 065

REACTIONS (2)
  - ALANINE AMINOTRANSFERASE INCREASED [None]
  - JAUNDICE [None]
